FAERS Safety Report 8896257 (Version 1)
Quarter: 2012Q4

REPORT INFORMATION
  Report Type: Spontaneous
  Country: US (occurrence: None)
  Receive Date: 20121106
  Receipt Date: 20121106
  Transmission Date: 20130627
  Serious: Yes (Death)
  Sender: FDA-Public Use
  Company Number: None

PATIENT
  Age: 40 Year
  Sex: Male
  Weight: 92.08 kg

DRUGS (1)
  1. PRADAXA [Suspect]
     Indication: HEART FLUTTERING
     Dates: start: 20110920, end: 20111107

REACTIONS (1)
  - Drug interaction [None]
